FAERS Safety Report 22197759 (Version 1)
Quarter: 2023Q2

REPORT INFORMATION
  Report Type: Spontaneous
  Country: CN (occurrence: CN)
  Receive Date: 20230411
  Receipt Date: 20230411
  Transmission Date: 20230722
  Serious: Yes (Life-Threatening, Other)
  Sender: FDA-Public Use
  Company Number: CN-Merck Healthcare KGaA-9394054

PATIENT
  Age: 65 Year
  Sex: Male
  Weight: 75 kg

DRUGS (4)
  1. ERBITUX [Suspect]
     Active Substance: CETUXIMAB
     Indication: Rectal cancer
     Dosage: 900 MG, UNKNOWN
     Route: 041
     Dates: start: 20221227, end: 20230228
  2. OXALIPLATIN [Suspect]
     Active Substance: OXALIPLATIN
     Indication: Rectal cancer
     Dosage: 150 MG, UNKNOWN
     Route: 041
     Dates: start: 20221227, end: 20230228
  3. CAPECITABINE [Concomitant]
     Active Substance: CAPECITABINE
     Indication: Rectal cancer
     Dosage: 1.5 G, UNK, D1-14, Q3W
     Route: 048
     Dates: start: 20221227
  4. CAPECITABINE [Concomitant]
     Active Substance: CAPECITABINE
     Dosage: 1.5 G, UNK, ONCE IN THREE WEEK
     Route: 048

REACTIONS (1)
  - Platelet count decreased [Recovering/Resolving]

NARRATIVE: CASE EVENT DATE: 20230320
